FAERS Safety Report 11731489 (Version 1)
Quarter: 2015Q4

REPORT INFORMATION
  Report Type: Spontaneous
  Country: US (occurrence: US)
  Receive Date: 20151110
  Receipt Date: 20151110
  Transmission Date: 20160304
  Serious: No
  Sender: FDA-Public Use
  Company Number: US-ELI_LILLY_AND_COMPANY-US201203004572

PATIENT
  Sex: Female

DRUGS (1)
  1. FORTEO [Suspect]
     Active Substance: TERIPARATIDE
     Indication: OSTEOPOROSIS
     Dosage: UNK, UNKNOWN
     Route: 065

REACTIONS (12)
  - Osteoporosis [Unknown]
  - Arthropathy [Unknown]
  - Blood pressure decreased [Unknown]
  - Adverse event [Unknown]
  - Fear [Unknown]
  - Irritability [Unknown]
  - Pain [Unknown]
  - Bone pain [Unknown]
  - Arthritis [Unknown]
  - Muscular weakness [Unknown]
  - Contusion [Unknown]
  - Memory impairment [Unknown]
